FAERS Safety Report 8844685 (Version 1)
Quarter: 2012Q4

REPORT INFORMATION
  Report Type: Report from Study
  Country: US (occurrence: US)
  Receive Date: 20121017
  Receipt Date: 20121017
  Transmission Date: 20130627
  Serious: Yes (Other)
  Sender: FDA-Public Use
  Company Number: US-JNJFOC-20121007221

PATIENT

DRUGS (3)
  1. REMICADE [Suspect]
     Indication: CROHN^S DISEASE
     Dosage: started on a low dose, 3 vials
     Route: 042
  2. REMICADE [Suspect]
     Indication: CROHN^S DISEASE
     Dosage: increased dose to maximum dose for body weight
     Route: 042
  3. TYLENOL [Concomitant]
     Indication: PREMEDICATION

REACTIONS (8)
  - Decreased immune responsiveness [Unknown]
  - Lupus-like syndrome [Unknown]
  - Psoriasis [Unknown]
  - Cellulitis [Unknown]
  - Drug ineffective [Unknown]
  - Headache [Unknown]
  - Crohn^s disease [Unknown]
  - Infection [Unknown]
